FAERS Safety Report 24798557 (Version 1)
Quarter: 2025Q1

REPORT INFORMATION
  Report Type: Spontaneous
  Country: US (occurrence: US)
  Receive Date: 20250102
  Receipt Date: 20250102
  Transmission Date: 20250409
  Serious: Yes (Life-Threatening, Other)
  Sender: SANDOZ
  Company Number: US-002147023-NVSC2024US244976

PATIENT
  Sex: Female

DRUGS (4)
  1. ALLOPURINOL [Suspect]
     Active Substance: ALLOPURINOL
     Indication: Product used for unknown indication
     Route: 065
  2. GLEEVEC [Suspect]
     Active Substance: IMATINIB MESYLATE
     Route: 065
  3. GLEEVEC [Suspect]
     Active Substance: IMATINIB MESYLATE
     Indication: Product used for unknown indication
     Route: 065
  4. HYDROXYUREA [Suspect]
     Active Substance: HYDROXYUREA
     Indication: Product used for unknown indication
     Route: 065

REACTIONS (5)
  - Maternal exposure during pregnancy [Unknown]
  - Gestational diabetes [Unknown]
  - Sensitive skin [Not Recovered/Not Resolved]
  - Fluid retention [Unknown]
  - Hypersensitivity [Not Recovered/Not Resolved]
